FAERS Safety Report 17906650 (Version 1)
Quarter: 2020Q2

REPORT INFORMATION
  Report Type: Spontaneous
  Country: US (occurrence: US)
  Receive Date: 20200616
  Receipt Date: 20200616
  Transmission Date: 20200714
  Serious: Yes (Other)
  Sender: FDA-Public Use
  Company Number: US-ROCHE-2579500

PATIENT
  Sex: Female

DRUGS (19)
  1. ACTEMRA [Suspect]
     Active Substance: TOCILIZUMAB
     Indication: TEMPORAL ARTERITIS
     Dosage: 0.9 ML
     Route: 058
  2. FOLIC ACID. [Concomitant]
     Active Substance: FOLIC ACID
  3. METOPROLOL. [Concomitant]
     Active Substance: METOPROLOL
     Route: 065
  4. AMLODIPINE [Concomitant]
     Active Substance: AMLODIPINE BESYLATE
     Route: 065
  5. NEURONTIN [Concomitant]
     Active Substance: GABAPENTIN
     Route: 065
  6. NOVOLOG [Concomitant]
     Active Substance: INSULIN ASPART
  7. HYDROXYCHLOROQUINE [Concomitant]
     Active Substance: HYDROXYCHLOROQUINE
     Route: 065
  8. METHOTREXATE. [Concomitant]
     Active Substance: METHOTREXATE
  9. ALENDRONATE [Concomitant]
     Active Substance: ALENDRONATE SODIUM
     Route: 065
  10. LEVOTHYROXINE. [Concomitant]
     Active Substance: LEVOTHYROXINE
  11. PREDNISONE. [Concomitant]
     Active Substance: PREDNISONE
     Route: 065
  12. VITAMIN D2 [Concomitant]
     Active Substance: ERGOCALCIFEROL
     Route: 065
  13. TYLENOL [Concomitant]
     Active Substance: ACETAMINOPHEN
     Route: 065
  14. LANTUS [Concomitant]
     Active Substance: INSULIN GLARGINE
  15. METFORMIN HYDROCHLORIDE. [Concomitant]
     Active Substance: METFORMIN HYDROCHLORIDE
  16. LOSARTAN POTASSIUM. [Concomitant]
     Active Substance: LOSARTAN POTASSIUM
     Route: 065
  17. LEFLUNOMIDE. [Concomitant]
     Active Substance: LEFLUNOMIDE
  18. VITAMIN B6 [Concomitant]
     Active Substance: PYRIDOXINE HYDROCHLORIDE
     Route: 065
  19. PRAVASTATIN. [Concomitant]
     Active Substance: PRAVASTATIN
     Route: 065

REACTIONS (1)
  - Tuberculosis [Not Recovered/Not Resolved]
